FAERS Safety Report 7240343-X (Version None)
Quarter: 2011Q1

REPORT INFORMATION
  Report Type: 
  Country: None (occurrence: None)
  Receive Date: 20110120
  Receipt Date: 20110120
  Transmission Date: 20110831
  Serious: Yes (Life-Threatening)
  Sender: FDA-Public Use
  Company Number: None

PATIENT
  Sex: Female
  Weight: 74.8435 kg

DRUGS (1)
  1. CLARITHROMYCIN [Suspect]
     Indication: BRONCHITIS
     Dosage: 500 MG 1 TABLET EVERY 12 HRS.
     Dates: start: 20110104

REACTIONS (4)
  - DIZZINESS [None]
  - ASTHENIA [None]
  - TACHYCARDIA [None]
  - HEART RATE INCREASED [None]
